FAERS Safety Report 9871135 (Version 2)
Quarter: 2014Q1

REPORT INFORMATION
  Report Type: Report from Study
  Country: US (occurrence: US)
  Receive Date: 20140205
  Receipt Date: 20140205
  Transmission Date: 20141002
  Serious: Yes (Hospitalization, Other)
  Sender: FDA-Public Use
  Company Number: US-SA-MOZO-1000765

PATIENT
  Age: 74 Year
  Sex: Male
  Weight: 72.9 kg

DRUGS (91)
  1. MOZOBIL [Suspect]
     Indication: LEUKAEMIA
     Dosage: 18 MG = 0.9 ML, CYCLE 1
     Route: 059
     Dates: start: 20120813, end: 20120813
  2. MOZOBIL [Suspect]
     Indication: ACUTE MYELOID LEUKAEMIA
     Dosage: 18 MG = 0.9 ML, CYCLE 1
     Route: 059
     Dates: start: 20120813, end: 20120813
  3. MOZOBIL [Suspect]
     Indication: LEUKAEMIA
     Dosage: 18 MG = 0.9 ML, CYCLE 1
     Route: 059
     Dates: start: 20120815, end: 20120815
  4. MOZOBIL [Suspect]
     Indication: ACUTE MYELOID LEUKAEMIA
     Dosage: 18 MG = 0.9 ML, CYCLE 1
     Route: 059
     Dates: start: 20120815, end: 20120815
  5. MOZOBIL [Suspect]
     Indication: LEUKAEMIA
     Dosage: 18 MG = 0.9 ML, CYCLE 1
     Route: 059
     Dates: start: 20120817, end: 20120817
  6. MOZOBIL [Suspect]
     Indication: ACUTE MYELOID LEUKAEMIA
     Dosage: 18 MG = 0.9 ML, CYCLE 1
     Route: 059
     Dates: start: 20120817, end: 20120817
  7. MOZOBIL [Suspect]
     Indication: LEUKAEMIA
     Dosage: 18 MG = 0.9 ML, CYCLE 1
     Route: 059
     Dates: start: 20120819, end: 20120819
  8. MOZOBIL [Suspect]
     Indication: ACUTE MYELOID LEUKAEMIA
     Dosage: 18 MG = 0.9 ML, CYCLE 1
     Route: 059
     Dates: start: 20120819, end: 20120819
  9. MOZOBIL [Suspect]
     Indication: LEUKAEMIA
     Dosage: 18 MG = 0.9 ML, CYCLE 1
     Route: 059
     Dates: start: 20120821, end: 20120821
  10. MOZOBIL [Suspect]
     Indication: ACUTE MYELOID LEUKAEMIA
     Dosage: 18 MG = 0.9 ML, CYCLE 1
     Route: 059
     Dates: start: 20120821, end: 20120821
  11. MOZOBIL [Suspect]
     Indication: LEUKAEMIA
     Dosage: 18 MG = 0.9 ML, CYCLE 1
     Route: 059
     Dates: start: 20120823, end: 20120823
  12. MOZOBIL [Suspect]
     Indication: ACUTE MYELOID LEUKAEMIA
     Dosage: 18 MG = 0.9 ML, CYCLE 1
     Route: 059
     Dates: start: 20120823, end: 20120823
  13. MOZOBIL [Suspect]
     Indication: LEUKAEMIA
     Dosage: 18 MG = 0.9 ML, CYCLE 1
     Route: 059
     Dates: start: 20120825, end: 20120825
  14. MOZOBIL [Suspect]
     Indication: ACUTE MYELOID LEUKAEMIA
     Dosage: 18 MG = 0.9 ML, CYCLE 1
     Route: 059
     Dates: start: 20120825, end: 20120825
  15. MOZOBIL [Suspect]
     Indication: LEUKAEMIA
     Dosage: 18000 MCQ, CYCLE 2
     Route: 059
     Dates: start: 20120912, end: 20120912
  16. MOZOBIL [Suspect]
     Indication: ACUTE MYELOID LEUKAEMIA
     Dosage: 18000 MCQ, CYCLE 2
     Route: 059
     Dates: start: 20120912, end: 20120912
  17. MOZOBIL [Suspect]
     Indication: LEUKAEMIA
     Dosage: 18000 MCQ, CYCLE 2
     Route: 059
     Dates: start: 20120914, end: 20120914
  18. MOZOBIL [Suspect]
     Indication: ACUTE MYELOID LEUKAEMIA
     Dosage: 18000 MCQ, CYCLE 2
     Route: 059
     Dates: start: 20120914, end: 20120914
  19. MOZOBIL [Suspect]
     Indication: LEUKAEMIA
     Dosage: 18000 MCQ, CYCLE 2
     Route: 059
     Dates: start: 20120916, end: 20120916
  20. MOZOBIL [Suspect]
     Indication: ACUTE MYELOID LEUKAEMIA
     Dosage: 18000 MCQ, CYCLE 2
     Route: 059
     Dates: start: 20120916, end: 20120916
  21. MOZOBIL [Suspect]
     Indication: LEUKAEMIA
     Dosage: 18000 MCQ, CYCLE 2
     Route: 059
     Dates: start: 20120918, end: 20120918
  22. MOZOBIL [Suspect]
     Indication: ACUTE MYELOID LEUKAEMIA
     Dosage: 18000 MCQ, CYCLE 2
     Route: 059
     Dates: start: 20120918, end: 20120918
  23. MOZOBIL [Suspect]
     Indication: LEUKAEMIA
     Dosage: 18000 MCQ, CYCLE 2
     Route: 059
     Dates: start: 20120920, end: 20120920
  24. MOZOBIL [Suspect]
     Indication: ACUTE MYELOID LEUKAEMIA
     Dosage: 18000 MCQ, CYCLE 2
     Route: 059
     Dates: start: 20120920, end: 20120920
  25. MOZOBIL [Suspect]
     Indication: LEUKAEMIA
     Dosage: 18000 MCQ, CYCLE 2
     Route: 059
     Dates: start: 20120922, end: 20120922
  26. MOZOBIL [Suspect]
     Indication: ACUTE MYELOID LEUKAEMIA
     Dosage: 18000 MCQ, CYCLE 2
     Route: 059
     Dates: start: 20120922, end: 20120922
  27. MOZOBIL [Suspect]
     Indication: LEUKAEMIA
     Dosage: 18000 MCQ, CYCLE 2
     Route: 059
     Dates: start: 20120924, end: 20120924
  28. MOZOBIL [Suspect]
     Indication: ACUTE MYELOID LEUKAEMIA
     Dosage: 18000 MCQ, CYCLE 2
     Route: 059
     Dates: start: 20120924, end: 20120924
  29. MOZOBIL [Suspect]
     Indication: LEUKAEMIA
     Dosage: 17520 MCQ, CYCLE 3
     Route: 059
     Dates: start: 20121011, end: 20121011
  30. MOZOBIL [Suspect]
     Indication: ACUTE MYELOID LEUKAEMIA
     Dosage: 17520 MCQ, CYCLE 3
     Route: 059
     Dates: start: 20121011, end: 20121011
  31. MOZOBIL [Suspect]
     Indication: LEUKAEMIA
     Dosage: 17520 MCQ, CYCLE 3
     Route: 059
     Dates: start: 20121013, end: 20121013
  32. MOZOBIL [Suspect]
     Indication: ACUTE MYELOID LEUKAEMIA
     Dosage: 17520 MCQ, CYCLE 3
     Route: 059
     Dates: start: 20121013, end: 20121013
  33. MOZOBIL [Suspect]
     Indication: LEUKAEMIA
     Dosage: 17520 MCQ, CYCLE 3
     Route: 059
     Dates: start: 20121015, end: 20121015
  34. MOZOBIL [Suspect]
     Indication: ACUTE MYELOID LEUKAEMIA
     Dosage: 17520 MCQ, CYCLE 3
     Route: 059
     Dates: start: 20121015, end: 20121015
  35. MOZOBIL [Suspect]
     Indication: LEUKAEMIA
     Dosage: 17520 MCQ, CYCLE 3
     Route: 059
     Dates: start: 20121017, end: 20121017
  36. MOZOBIL [Suspect]
     Indication: ACUTE MYELOID LEUKAEMIA
     Dosage: 17520 MCQ, CYCLE 3
     Route: 059
     Dates: start: 20121017, end: 20121017
  37. MOZOBIL [Suspect]
     Indication: LEUKAEMIA
     Dosage: 17520 MCQ, CYCLE 3
     Route: 059
     Dates: start: 20121019, end: 20121019
  38. MOZOBIL [Suspect]
     Indication: ACUTE MYELOID LEUKAEMIA
     Dosage: 17520 MCQ, CYCLE 3
     Route: 059
     Dates: start: 20121019, end: 20121019
  39. SORAFENIB [Suspect]
     Indication: LEUKAEMIA
     Dosage: 800 MG, BID, ON DAYS 1-28 WITHOUT MISSING ANY DOSES (CYCLE 1)
     Route: 065
     Dates: start: 20120813, end: 20120909
  40. SORAFENIB [Suspect]
     Indication: ACUTE MYELOID LEUKAEMIA
     Dosage: 800 MG, BID, ON DAYS 1-28 WITHOUT MISSING ANY DOSES (CYCLE 1)
     Route: 065
     Dates: start: 20120813, end: 20120909
  41. SORAFENIB [Suspect]
     Indication: LEUKAEMIA
     Dosage: 800 MG, BID, ON DAYS 1-28 WITHOUT MISSING ANY DOSES (CYCLE 2)
     Route: 065
     Dates: start: 20120912, end: 20121009
  42. SORAFENIB [Suspect]
     Indication: ACUTE MYELOID LEUKAEMIA
     Dosage: 800 MG, BID, ON DAYS 1-28 WITHOUT MISSING ANY DOSES (CYCLE 2)
     Route: 065
     Dates: start: 20120912, end: 20121009
  43. SORAFENIB [Suspect]
     Indication: LEUKAEMIA
     Dosage: 800 MG, BID, ON DAYS 1-28 (CYCLE 3)
     Route: 065
     Dates: start: 20121011, end: 20121107
  44. SORAFENIB [Suspect]
     Indication: ACUTE MYELOID LEUKAEMIA
     Dosage: 800 MG, BID, ON DAYS 1-28 (CYCLE 3)
     Route: 065
     Dates: start: 20121011, end: 20121107
  45. FILGRASTIM [Suspect]
     Indication: LEUKAEMIA
     Dosage: 960 MCG, CYCLE 1
     Route: 059
     Dates: start: 20120813, end: 20120813
  46. FILGRASTIM [Suspect]
     Indication: ACUTE MYELOID LEUKAEMIA
     Dosage: 960 MCG, CYCLE 1
     Route: 059
     Dates: start: 20120813, end: 20120813
  47. FILGRASTIM [Suspect]
     Indication: LEUKAEMIA
     Dosage: 960 MCG, CYCLE 1
     Route: 059
     Dates: start: 20120815, end: 20120815
  48. FILGRASTIM [Suspect]
     Indication: ACUTE MYELOID LEUKAEMIA
     Dosage: 960 MCG, CYCLE 1
     Route: 059
     Dates: start: 20120815, end: 20120815
  49. FILGRASTIM [Suspect]
     Indication: LEUKAEMIA
     Dosage: 960 MCG, CYCLE 1
     Route: 059
     Dates: start: 20120817, end: 20120817
  50. FILGRASTIM [Suspect]
     Indication: ACUTE MYELOID LEUKAEMIA
     Dosage: 960 MCG, CYCLE 1
     Route: 059
     Dates: start: 20120817, end: 20120817
  51. FILGRASTIM [Suspect]
     Indication: LEUKAEMIA
     Dosage: 960 MCG, CYCLE 1
     Route: 059
     Dates: start: 20120819, end: 20120819
  52. FILGRASTIM [Suspect]
     Indication: ACUTE MYELOID LEUKAEMIA
     Dosage: 960 MCG, CYCLE 1
     Route: 059
     Dates: start: 20120819, end: 20120819
  53. FILGRASTIM [Suspect]
     Indication: LEUKAEMIA
     Dosage: 960 MCG, CYCLE 1
     Route: 059
     Dates: start: 20120821, end: 20120821
  54. FILGRASTIM [Suspect]
     Indication: ACUTE MYELOID LEUKAEMIA
     Dosage: 960 MCG, CYCLE 1
     Route: 059
     Dates: start: 20120821, end: 20120821
  55. FILGRASTIM [Suspect]
     Indication: LEUKAEMIA
     Dosage: 960 MCG, CYCLE 1
     Route: 059
     Dates: start: 20120823, end: 20120823
  56. FILGRASTIM [Suspect]
     Indication: ACUTE MYELOID LEUKAEMIA
     Dosage: 960 MCG, CYCLE 1
     Route: 059
     Dates: start: 20120823, end: 20120823
  57. FILGRASTIM [Suspect]
     Indication: LEUKAEMIA
     Dosage: 960 MCG, CYCLE 1
     Route: 059
     Dates: start: 20120825, end: 20120825
  58. FILGRASTIM [Suspect]
     Indication: ACUTE MYELOID LEUKAEMIA
     Dosage: 960 MCG, CYCLE 1
     Route: 059
     Dates: start: 20120825, end: 20120825
  59. FILGRASTIM [Suspect]
     Indication: LEUKAEMIA
     Dosage: 780 MCG, QD, CYCLE 2
     Route: 059
     Dates: start: 20120912, end: 20120912
  60. FILGRASTIM [Suspect]
     Indication: ACUTE MYELOID LEUKAEMIA
     Dosage: 780 MCG, QD, CYCLE 2
     Route: 059
     Dates: start: 20120912, end: 20120912
  61. FILGRASTIM [Suspect]
     Indication: LEUKAEMIA
     Dosage: 780 MCG, QD, CYCLE 2
     Route: 059
     Dates: start: 20120914, end: 20120914
  62. FILGRASTIM [Suspect]
     Indication: ACUTE MYELOID LEUKAEMIA
     Dosage: 780 MCG, QD, CYCLE 2
     Route: 059
     Dates: start: 20120914, end: 20120914
  63. FILGRASTIM [Suspect]
     Indication: LEUKAEMIA
     Dosage: 780 MCG, QD, CYCLE 2
     Route: 059
     Dates: start: 20120916, end: 20120916
  64. FILGRASTIM [Suspect]
     Indication: ACUTE MYELOID LEUKAEMIA
     Dosage: 780 MCG, QD, CYCLE 2
     Route: 059
     Dates: start: 20120916, end: 20120916
  65. FILGRASTIM [Suspect]
     Indication: LEUKAEMIA
     Dosage: 780 MCG, QD, CYCLE 2
     Route: 059
     Dates: start: 20120918, end: 20120918
  66. FILGRASTIM [Suspect]
     Indication: ACUTE MYELOID LEUKAEMIA
     Dosage: 780 MCG, QD, CYCLE 2
     Route: 059
     Dates: start: 20120918, end: 20120918
  67. FILGRASTIM [Suspect]
     Indication: LEUKAEMIA
     Dosage: 780 MCG, QD, CYCLE 2
     Route: 059
     Dates: start: 20120920, end: 20120920
  68. FILGRASTIM [Suspect]
     Indication: ACUTE MYELOID LEUKAEMIA
     Dosage: 780 MCG, QD, CYCLE 2
     Route: 059
     Dates: start: 20120920, end: 20120920
  69. FILGRASTIM [Suspect]
     Indication: LEUKAEMIA
     Dosage: 780 MCG, QD, CYCLE 2
     Route: 059
     Dates: start: 20120922, end: 20120922
  70. FILGRASTIM [Suspect]
     Indication: ACUTE MYELOID LEUKAEMIA
     Dosage: 780 MCG, QD, CYCLE 2
     Route: 059
     Dates: start: 20120922, end: 20120922
  71. FILGRASTIM [Suspect]
     Indication: LEUKAEMIA
     Dosage: 780 MCG, QD, CYCLE 2
     Route: 059
     Dates: start: 20120924, end: 20120924
  72. FILGRASTIM [Suspect]
     Indication: ACUTE MYELOID LEUKAEMIA
     Dosage: 780 MCG, QD, CYCLE 2
     Route: 059
     Dates: start: 20120924, end: 20120924
  73. FILGRASTIM [Suspect]
     Indication: LEUKAEMIA
     Dosage: 780 MCG, QD, CYCLE 3
     Route: 059
     Dates: start: 20121011, end: 20121011
  74. FILGRASTIM [Suspect]
     Indication: ACUTE MYELOID LEUKAEMIA
     Dosage: 780 MCG, QD, CYCLE 3
     Route: 059
     Dates: start: 20121011, end: 20121011
  75. FILGRASTIM [Suspect]
     Indication: LEUKAEMIA
     Dosage: 780 MCG, QD, CYCLE 3
     Route: 059
     Dates: start: 20121013, end: 20121013
  76. FILGRASTIM [Suspect]
     Indication: ACUTE MYELOID LEUKAEMIA
     Dosage: 780 MCG, QD, CYCLE 3
     Route: 059
     Dates: start: 20121013, end: 20121013
  77. FILGRASTIM [Suspect]
     Indication: LEUKAEMIA
     Dosage: 780 MCG, QD, CYCLE 3
     Route: 059
     Dates: start: 20121015, end: 20121015
  78. FILGRASTIM [Suspect]
     Indication: ACUTE MYELOID LEUKAEMIA
     Dosage: 780 MCG, QD, CYCLE 3
     Route: 059
     Dates: start: 20121015, end: 20121015
  79. FILGRASTIM [Suspect]
     Indication: LEUKAEMIA
     Dosage: 780 MCG, QD, CYCLE 3
     Route: 059
     Dates: start: 20121017, end: 20121017
  80. FILGRASTIM [Suspect]
     Indication: ACUTE MYELOID LEUKAEMIA
     Dosage: 780 MCG, QD, CYCLE 3
     Route: 059
     Dates: start: 20121017, end: 20121017
  81. FILGRASTIM [Suspect]
     Indication: LEUKAEMIA
     Dosage: 780 MCG, QD, CYCLE 3
     Route: 059
     Dates: start: 20121019, end: 20121019
  82. FILGRASTIM [Suspect]
     Indication: ACUTE MYELOID LEUKAEMIA
     Dosage: 780 MCG, QD, CYCLE 3
     Route: 059
     Dates: start: 20121019, end: 20121019
  83. BENZONATATE [Concomitant]
     Indication: PRODUCT USED FOR UNKNOWN INDICATION
     Dosage: UNK
     Route: 065
  84. CALCIUM [Concomitant]
     Indication: PRODUCT USED FOR UNKNOWN INDICATION
     Dosage: UNK
     Route: 065
  85. LEVOTHYROXINE [Concomitant]
     Indication: PRODUCT USED FOR UNKNOWN INDICATION
     Dosage: UNK
     Route: 065
  86. LEVIMIR [Concomitant]
     Indication: PRODUCT USED FOR UNKNOWN INDICATION
     Dosage: UNK
     Route: 065
  87. MAGNESIUM PROTEIN COMPLEX [Concomitant]
     Indication: PRODUCT USED FOR UNKNOWN INDICATION
     Dosage: UNK
     Route: 065
  88. UNKNOWDRUG [Concomitant]
     Indication: PRODUCT USED FOR UNKNOWN INDICATION
     Dosage: UNK
     Route: 065
  89. PANTOPRAZOLE [Concomitant]
     Indication: PRODUCT USED FOR UNKNOWN INDICATION
     Dosage: UNK
     Route: 065
  90. TAMULOSIN [Concomitant]
     Indication: PRODUCT USED FOR UNKNOWN INDICATION
     Dosage: UNK
     Route: 065
  91. VALACICLOVIR [Concomitant]
     Indication: PRODUCT USED FOR UNKNOWN INDICATION
     Dosage: UNK
     Route: 065

REACTIONS (8)
  - Hyperbilirubinaemia [Recovered/Resolved]
  - Pneumonia [Recovered/Resolved]
  - Acute myeloid leukaemia [Unknown]
  - Atrial fibrillation [Recovered/Resolved]
  - Left ventricular dysfunction [Not Recovered/Not Resolved]
  - Urinary tract infection enterococcal [Recovered/Resolved]
  - Muscular weakness [Recovered/Resolved]
  - Pneumonia [Recovered/Resolved]
